FAERS Safety Report 21843148 (Version 9)
Quarter: 2023Q1

REPORT INFORMATION
  Report Type: Spontaneous
  Country: US (occurrence: US)
  Receive Date: 20230110
  Receipt Date: 20230227
  Transmission Date: 20230417
  Serious: No
  Sender: FDA-Public Use
  Company Number: US-PFIZER INC-202300004938

PATIENT
  Age: 9 Year
  Sex: Female
  Weight: 36.29 kg

DRUGS (3)
  1. SOMATROPIN [Suspect]
     Active Substance: SOMATROPIN
     Indication: Growth disorder
     Dosage: 0.8 MG, 1X/DAY
  2. SOMATROPIN [Suspect]
     Active Substance: SOMATROPIN
     Dosage: 0.6 MG
  3. CORTISONE [Concomitant]
     Active Substance: CORTISONE
     Dosage: 1.5 DF, DAILY

REACTIONS (3)
  - Drug dose omission by device [Unknown]
  - Product contamination [Unknown]
  - Liquid product physical issue [Unknown]

NARRATIVE: CASE EVENT DATE: 20230101
